FAERS Safety Report 13451222 (Version 2)
Quarter: 2017Q3

REPORT INFORMATION
  Report Type: Report from Study
  Country: US (occurrence: US)
  Receive Date: 20170418
  Receipt Date: 20170719
  Transmission Date: 20171127
  Serious: No
  Sender: FDA-Public Use
  Company Number: US-ALEXION PHARMACEUTICALS INC.-A201703821

PATIENT
  Sex: Female

DRUGS (1)
  1. STRENSIQ [Suspect]
     Active Substance: ASFOTASE ALFA
     Indication: HYPOPHOSPHATASIA
     Dosage: 20.8 MG, TIW
     Route: 058

REACTIONS (4)
  - Insomnia [Unknown]
  - Injection site pain [Unknown]
  - Clumsy child syndrome [Unknown]
  - Irritability [Unknown]
